FAERS Safety Report 9100032 (Version 1)
Quarter: 2013Q1

REPORT INFORMATION
  Report Type: Spontaneous
  Country: US (occurrence: US)
  Receive Date: 20130215
  Receipt Date: 20130215
  Transmission Date: 20140127
  Serious: No
  Sender: FDA-Public Use
  Company Number: US-PFIZER INC-2013057981

PATIENT
  Age: 54 Year
  Sex: Female
  Weight: 67.12 kg

DRUGS (5)
  1. LYRICA [Suspect]
     Indication: PAIN
     Dosage: 200 MG, 2X/DAY
  2. ZOLPIDEM TARTRATE [Suspect]
     Indication: SLEEP DISORDER
     Dosage: 10 MG, 1X/DAY (DAILY)
  3. OXYCODONE [Concomitant]
     Indication: PAIN
     Dosage: 10 MG, 2X/DAY
  4. DIAZEPAM [Concomitant]
     Dosage: 5 MG, UNK
  5. LORTAB [Concomitant]
     Indication: PAIN
     Dosage: 5/500 MG, UNK

REACTIONS (4)
  - Feeling abnormal [Unknown]
  - Insomnia [Unknown]
  - Pain [Unknown]
  - Drug ineffective [Unknown]
